FAERS Safety Report 18473854 (Version 1)
Quarter: 2020Q4

REPORT INFORMATION
  Report Type: Spontaneous
  Country: US (occurrence: US)
  Receive Date: 20201106
  Receipt Date: 20201106
  Transmission Date: 20210114
  Serious: Yes (Other)
  Sender: FDA-Public Use
  Company Number: US-PFIZER INC-2020427442

PATIENT
  Age: 34 Year
  Sex: Female
  Weight: 56.7 kg

DRUGS (8)
  1. NATURE^S WAY ALIVE WOMEN^S 50 PLUS [Concomitant]
     Dosage: UNK
  2. XALKORI [Suspect]
     Active Substance: CRIZOTINIB
     Indication: LUNG NEOPLASM MALIGNANT
     Dosage: 1 PILL, 2X/DAY
     Dates: start: 1996
  3. PSYLLIUM FIBRE [Concomitant]
     Active Substance: HERBALS\PLANTAGO OVATA SEED COAT
     Indication: CONSTIPATION
     Dosage: UNK, DAILY (ONE SERVING SIZE OR LESS- TABLESPOON FULL DAILY)
  4. XALKORI [Suspect]
     Active Substance: CRIZOTINIB
     Dosage: 250 MG, (ONE CAPSULE ON EVEN DAYS AND TWO CAPSULES ON ODD DAYS ONE IN THE MORNING AND ONE AT NIGHT)
  5. CITRACAL MAXIMUM [Suspect]
     Active Substance: CALCIUM CITRATE\CHOLECALCIFEROL
     Indication: BLOOD CALCIUM DECREASED
     Dosage: UNK, DAILY (1-2 A DAY)
  6. CITRACAL MAXIMUM [Suspect]
     Active Substance: CALCIUM CITRATE\CHOLECALCIFEROL
     Dosage: 650 MG, (650 MG FOR 2. SHE WAS TAKING 3 A DAY SOMETIMES 4)
  7. LEVOTHYROXINE. [Concomitant]
     Active Substance: LEVOTHYROXINE
     Indication: HYPOTHYROIDISM
     Dosage: 50 UG, DAILY
  8. MIRALAX [Concomitant]
     Active Substance: POLYETHYLENE GLYCOL 3350
     Indication: CONSTIPATION
     Dosage: UNK (SHE STARTED TAKING A COUPLE, 20.4 OUNCES OR 34 ONCE DAILY DOSES)

REACTIONS (10)
  - Irritable bowel syndrome [Unknown]
  - Hypothyroidism [Unknown]
  - Gastric hypomotility [Unknown]
  - Diarrhoea [Unknown]
  - Constipation [Unknown]
  - Condition aggravated [Unknown]
  - Osteoporosis [Unknown]
  - Asthma [Unknown]
  - Gastrointestinal mucosal disorder [Unknown]
  - Blood test abnormal [Unknown]
